FAERS Safety Report 21321640 (Version 1)
Quarter: 2022Q3

REPORT INFORMATION
  Report Type: Spontaneous
  Country: US (occurrence: None)
  Receive Date: 20220909
  Receipt Date: 20220909
  Transmission Date: 20221027
  Serious: Yes (Other)
  Sender: FDA-Public Use
  Company Number: None

PATIENT
  Age: 59 Year
  Sex: Female

DRUGS (18)
  1. HUMIRA [Suspect]
     Active Substance: ADALIMUMAB
     Indication: Sacroiliitis
     Dosage: FREQUENCY : EVERY OTHER WEEK;?
     Route: 058
     Dates: start: 202206
  2. CALCIUM\VITAMIN D [Concomitant]
     Active Substance: CALCIUM\VITAMIN D
  3. MAGNESIUM [Concomitant]
     Active Substance: MAGNESIUM
  4. MLK THISTLE [Concomitant]
  5. CLOBETASOL [Concomitant]
     Active Substance: CLOBETASOL
  6. CLOBETASON PROP [Concomitant]
  7. DICYCLOMINE [Concomitant]
     Active Substance: DICYCLOMINE HYDROCHLORIDE
  8. GABAPENTIN [Concomitant]
     Active Substance: GABAPENTIN
  9. GAS RELIEF [Concomitant]
     Active Substance: DIMETHICONE
  10. GAVILYTE-C SOLN [Concomitant]
  11. HYDROCODONE BITARTRATE AND ACETAMINOPHEN [Concomitant]
     Active Substance: ACETAMINOPHEN\HYDROCODONE BITARTRATE
  12. LIALDA [Concomitant]
     Active Substance: MESALAMINE
  13. LOPERAMIDE [Concomitant]
     Active Substance: LOPERAMIDE
  14. MELOXICAM [Concomitant]
     Active Substance: MELOXICAM
  15. METHOCARBAMOL [Concomitant]
     Active Substance: METHOCARBAMOL
  16. PREMARIN [Concomitant]
     Active Substance: ESTROGENS, CONJUGATED
  17. PROPRANOLOL HYDROCHLORIDE [Concomitant]
     Active Substance: PROPRANOLOL HYDROCHLORIDE
  18. RIZATRIPTAN BENZOATE [Concomitant]
     Active Substance: RIZATRIPTAN BENZOATE

REACTIONS (2)
  - Gait disturbance [None]
  - Condition aggravated [None]

NARRATIVE: CASE EVENT DATE: 20220831
